FAERS Safety Report 7384489-4 (Version None)
Quarter: 2011Q1

REPORT INFORMATION
  Report Type: 
  Country: None (occurrence: None)
  Receive Date: 20110330
  Receipt Date: 20110323
  Transmission Date: 20110831
  Serious: Yes (Hospitalization, Other)
  Sender: FDA-Public Use
  Company Number: US-SANOFI-AVENTIS-2011SA018395

PATIENT
  Age: 77 Year
  Sex: Female

DRUGS (1)
  1. LANTUS [Suspect]
     Indication: DIABETES MELLITUS
     Dosage: HAS BEEN TAKING LANTUS FOR A NUMBER OF YEARS DOSE:27 UNIT(S)
     Route: 058

REACTIONS (2)
  - FALL [None]
  - SUBDURAL HAEMATOMA [None]
